FAERS Safety Report 4660908-9 (Version None)
Quarter: 2005Q2

REPORT INFORMATION
  Report Type: 
  Country: None (occurrence: None)
  Receive Date: 20050511
  Receipt Date: 20050503
  Transmission Date: 20051028
  Serious: Yes (Death)
  Sender: FDA-Public Use
  Company Number: 2004-11-1222

PATIENT
  Age: 27 Year
  Sex: Female

DRUGS (2)
  1. TEMODAR [Suspect]
     Indication: GLIOBLASTOMA MULTIFORME
     Dosage: ORAL
     Route: 048
     Dates: start: 20040101, end: 20040101
  2. RADIATION THERAPY [Concomitant]

REACTIONS (2)
  - DISEASE PROGRESSION [None]
  - NON-HODGKIN'S LYMPHOMA [None]
